FAERS Safety Report 7576262-9 (Version None)
Quarter: 2011Q2

REPORT INFORMATION
  Report Type: 
  Country: None (occurrence: None)
  Receive Date: 20110628
  Receipt Date: 20110606
  Transmission Date: 20111010
  Serious: Yes (Hospitalization, Other)
  Sender: FDA-Public Use
  Company Number: US-BAYER-201010779NA

PATIENT
  Age: 17 Year
  Sex: Female
  Weight: 58.957 kg

DRUGS (8)
  1. YAZ [Suspect]
     Indication: ACNE
  2. CECLOR [Concomitant]
     Dosage: UNK
     Dates: start: 20091008
  3. DURATUSS [Concomitant]
     Dosage: UNK
     Dates: start: 20090922
  4. YAZ [Suspect]
     Indication: ORAL CONTRACEPTION
     Route: 048
     Dates: start: 20080701, end: 20100101
  5. TUSS CLEAR [Concomitant]
     Dosage: UNK
     Route: 048
     Dates: start: 20091008
  6. IBUPROFEN [Concomitant]
  7. ZITHROMAX [Concomitant]
     Dosage: UNK
     Route: 048
     Dates: start: 20090922
  8. AMOXICILLIN [Concomitant]

REACTIONS (4)
  - PAIN [None]
  - CHOLECYSTECTOMY [None]
  - CHOLECYSTITIS ACUTE [None]
  - INJURY [None]
